FAERS Safety Report 15363372 (Version 2)
Quarter: 2018Q3

REPORT INFORMATION
  Report Type: Report from Study
  Country: US (occurrence: US)
  Receive Date: 20180907
  Receipt Date: 20180919
  Transmission Date: 20181010
  Serious: Yes (Hospitalization)
  Sender: FDA-Public Use
  Company Number: US-ACTELION-A-US2018-177666

PATIENT
  Age: 49 Year
  Sex: Male
  Weight: 90.7 kg

DRUGS (4)
  1. REMODULIN [Concomitant]
     Active Substance: TREPROSTINIL
  2. OPSUMIT [Suspect]
     Active Substance: MACITENTAN
     Indication: PULMONARY HYPERTENSION
     Dosage: 10 MG, QD
     Route: 048
     Dates: start: 20180709
  3. WARFARIN [Concomitant]
     Active Substance: WARFARIN
  4. TADALAFIL [Concomitant]
     Active Substance: TADALAFIL
     Dosage: UNK
     Dates: start: 201807

REACTIONS (15)
  - Renal impairment [Recovered/Resolved]
  - Nausea [Unknown]
  - Oliguria [Unknown]
  - Catheter placement [Recovered/Resolved]
  - Acute kidney injury [Recovered/Resolved]
  - Asthenia [Unknown]
  - Alanine aminotransferase increased [Recovered/Resolved]
  - Hypovolaemia [Recovered/Resolved]
  - Diarrhoea [Unknown]
  - Fall [Unknown]
  - Hypotension [Unknown]
  - Pain [Recovered/Resolved]
  - Aspartate aminotransferase increased [Recovered/Resolved]
  - Photophobia [Recovered/Resolved]
  - Vomiting [Unknown]

NARRATIVE: CASE EVENT DATE: 20180808
